FAERS Safety Report 24730347 (Version 1)
Quarter: 2024Q4

REPORT INFORMATION
  Report Type: Spontaneous
  Country: US (occurrence: US)
  Receive Date: 20241213
  Receipt Date: 20241213
  Transmission Date: 20250115
  Serious: Yes (Other)
  Sender: AMGEN
  Company Number: US-AMGEN-USASP2024243726

PATIENT

DRUGS (1)
  1. PREDNISONE [Suspect]
     Active Substance: PREDNISONE
     Indication: Allogenic stem cell transplantation
     Dosage: UNK
     Route: 065

REACTIONS (2)
  - Acute graft versus host disease [Unknown]
  - Off label use [Unknown]
